FAERS Safety Report 6229321-7 (Version None)
Quarter: 2009Q2

REPORT INFORMATION
  Report Type: 
  Country: None (occurrence: None)
  Receive Date: 20090615
  Receipt Date: 20090610
  Transmission Date: 20091009
  Serious: Yes (Other)
  Sender: FDA-Public Use
  Company Number: US-JNJFOC-20090604226

PATIENT
  Age: 53 Year
  Sex: Male

DRUGS (3)
  1. LEVAQUIN [Suspect]
     Route: 048
  2. LEVAQUIN [Suspect]
     Route: 048
  3. LEVAQUIN [Suspect]
     Indication: PROSTATITIS
     Route: 048

REACTIONS (2)
  - DEMYELINATION [None]
  - NEUROPATHY PERIPHERAL [None]
